FAERS Safety Report 8228423-3 (Version None)
Quarter: 2012Q1

REPORT INFORMATION
  Report Type: 
  Country: None (occurrence: None)
  Receive Date: 20120322
  Receipt Date: 20111228
  Transmission Date: 20120608
  Serious: Yes (Death, Hospitalization, Disabling)
  Sender: FDA-Public Use
  Company Number: UG-GILEAD-2011-0047854

PATIENT
  Sex: Male

DRUGS (5)
  1. COTRIM [Concomitant]
     Indication: PROPHYLAXIS
     Dosage: UNK, QOD
     Dates: start: 20080501
  2. EMTRICITABINE AND TENOFOVIR DISOPROXIL FUMARATE [Suspect]
     Indication: HIV INFECTION
     Dosage: 500 MG, QOD
     Route: 048
     Dates: start: 20110526, end: 20111213
  3. CEFTRIAXONE [Concomitant]
     Indication: BACTERIAL INFECTION
     Dosage: UNK
     Route: 042
     Dates: start: 20111125
  4. METOCLOPRAMIDE [Concomitant]
     Indication: NAUSEA
     Dosage: UNK
     Route: 042
  5. LOPINAVIR AND RITONAVIR [Suspect]
     Indication: HIV INFECTION
     Dosage: 500 MG, BID
     Route: 048
     Dates: start: 20110526, end: 20111213

REACTIONS (1)
  - BRONCHOPNEUMONIA [None]
